FAERS Safety Report 7722786-0 (Version None)
Quarter: 2011Q3

REPORT INFORMATION
  Report Type: 
  Country: None (occurrence: None)
  Receive Date: 20110901
  Receipt Date: 20110823
  Transmission Date: 20111222
  Serious: Yes (Hospitalization)
  Sender: FDA-Public Use
  Company Number: US-BIOGENIDEC-2011BI031943

PATIENT
  Age: 44 Year
  Sex: Male

DRUGS (2)
  1. TYSABRI [Suspect]
     Indication: MULTIPLE SCLEROSIS
     Route: 042
     Dates: start: 20070308, end: 20070524
  2. TYSABRI [Suspect]
     Route: 042
     Dates: start: 20080514

REACTIONS (6)
  - HYPOAESTHESIA [None]
  - MUSCULAR WEAKNESS [None]
  - HEADACHE [None]
  - INFLUENZA [None]
  - FALL [None]
  - PAIN IN EXTREMITY [None]
